FAERS Safety Report 7056690-0 (Version None)
Quarter: 2010Q4

REPORT INFORMATION
  Report Type: 
  Country: None (occurrence: None)
  Receive Date: 20101019
  Receipt Date: 20101005
  Transmission Date: 20110411
  Serious: Yes (Congenital Anomaly)
  Sender: FDA-Public Use
  Company Number: AUR-APL-2010-02477

PATIENT

DRUGS (3)
  1. MIRTAZAPINE [Suspect]
     Indication: PERSONALITY DISORDER
     Dosage: 45MG-UNK-TRANSPLACENTA
     Route: 064
  2. SEROQUEL [Suspect]
     Indication: PERSONALITY DISORDER
     Dosage: 250MG-UNK-TRANSPLACENTA
     Route: 064
  3. TRAMADOL HCL [Concomitant]

REACTIONS (4)
  - FIBULA AGENESIS [None]
  - LIMB REDUCTION DEFECT [None]
  - MATERNAL DRUGS AFFECTING FOETUS [None]
  - TALIPES [None]
